FAERS Safety Report 4879055-6 (Version None)
Quarter: 2005Q4

REPORT INFORMATION
  Report Type: 
  Country: None (occurrence: None)
  Receive Date: 20051209
  Receipt Date: 20050511
  Transmission Date: 20060501
  Serious: Yes (Other)
  Sender: FDA-Public Use
  Company Number: USA-2005-0019307

PATIENT
  Age: 29 Year
  Sex: Female
  Weight: 87.1 kg

DRUGS (3)
  1. OXYCONTIN [Suspect]
     Indication: PAIN
     Dosage: 20 MG, Q12H PRN, ORAL
     Route: 048
     Dates: start: 20040301
  2. OXYIR CAPSULE 5 MG [Concomitant]
  3. PROZAC [Concomitant]

REACTIONS (2)
  - DRUG ABUSER [None]
  - DRUG DEPENDENCE [None]
